FAERS Safety Report 8921749 (Version 3)
Quarter: 2013Q1

REPORT INFORMATION
  Report Type: Spontaneous
  Country: US (occurrence: US)
  Receive Date: 20121121
  Receipt Date: 20130102
  Transmission Date: 20140127
  Serious: Yes (Other)
  Sender: FDA-Public Use
  Company Number: US-JNJFOC-20121108955

PATIENT
  Sex: Female
  Weight: 77.11 kg

DRUGS (22)
  1. SIMPONI [Suspect]
     Indication: RHEUMATOID ARTHRITIS
     Route: 058
     Dates: start: 20121118
  2. SIMPONI [Suspect]
     Indication: RHEUMATOID ARTHRITIS
     Route: 058
     Dates: start: 20110428, end: 20121018
  3. PULMICORT [Concomitant]
     Indication: ASTHMA
     Route: 055
  4. CALCIUM AND VIT D [Concomitant]
     Indication: MINERAL SUPPLEMENTATION
     Route: 048
  5. PHENOBARBITAL [Concomitant]
     Indication: CONVULSION
     Route: 065
  6. FOLIC ACID [Concomitant]
     Indication: VITAMIN SUPPLEMENTATION
     Route: 065
  7. ATORVASTATIN [Concomitant]
     Indication: BLOOD CHOLESTEROL
     Route: 065
  8. MELOXICAM [Concomitant]
     Indication: RHEUMATOID ARTHRITIS
     Dosage: DAILY DOSE: 7.5
     Route: 065
  9. MELOXICAM [Concomitant]
     Indication: RHEUMATOID ARTHRITIS
     Route: 065
  10. NEXIUM [Concomitant]
     Indication: GASTROOESOPHAGEAL REFLUX DISEASE
     Route: 065
  11. ZYRTEC [Concomitant]
     Route: 065
  12. PATANASE [Concomitant]
     Route: 055
  13. NASOCORT [Concomitant]
     Route: 055
  14. METHOTREXATE [Concomitant]
     Indication: RHEUMATOID ARTHRITIS
     Route: 065
  15. METHOTREXATE [Concomitant]
     Indication: RHEUMATOID ARTHRITIS
     Route: 065
  16. METHOTREXATE [Concomitant]
     Indication: RHEUMATOID ARTHRITIS
     Route: 065
     Dates: end: 201210
  17. VITAMIN B6 [Concomitant]
     Indication: VITAMIN SUPPLEMENTATION
     Route: 048
  18. MULTIVITAMINS [Concomitant]
     Indication: VITAMIN SUPPLEMENTATION
     Route: 048
  19. OMEGA 3 [Concomitant]
     Indication: MEDICAL DIET
     Route: 048
  20. XOPENEX [Concomitant]
     Indication: ASTHMA
     Route: 055
  21. LIPITOR [Concomitant]
     Indication: BLOOD CHOLESTEROL INCREASED
     Route: 065
  22. TRAMADOL [Concomitant]
     Route: 065

REACTIONS (4)
  - Sinusitis [Recovered/Resolved]
  - Fungal infection [Recovered/Resolved]
  - Fungal oesophagitis [Recovered/Resolved]
  - Hypersensitivity [Recovered/Resolved]
